FAERS Safety Report 18050824 (Version 7)
Quarter: 2021Q4

REPORT INFORMATION
  Report Type: Report from Study
  Country: US (occurrence: US)
  Receive Date: 20200721
  Receipt Date: 20211216
  Transmission Date: 20220303
  Serious: Yes (Other)
  Sender: FDA-Public Use
  Company Number: NVSC2020US203728

PATIENT
  Age: 63 Year
  Sex: Male

DRUGS (4)
  1. MAYZENT [Suspect]
     Active Substance: SIPONIMOD
     Indication: Multiple sclerosis
     Dosage: 1 MG, QD
     Route: 048
     Dates: start: 202004
  2. MAYZENT [Suspect]
     Active Substance: SIPONIMOD
     Dosage: 1 MG, QD
     Route: 048
     Dates: start: 202102
  3. MAYZENT [Suspect]
     Active Substance: SIPONIMOD
     Dosage: 1 MG, QD (VIA MOUTH)
     Route: 048
     Dates: start: 202103
  4. ACTHAR [Suspect]
     Active Substance: CORTICOTROPIN
     Indication: Asthenia
     Dosage: (FIVE SHOTS TOTAL)
     Route: 065
     Dates: start: 202108

REACTIONS (6)
  - Multiple sclerosis [Recovering/Resolving]
  - Muscle spasms [Recovering/Resolving]
  - COVID-19 [Recovering/Resolving]
  - Fall [Recovering/Resolving]
  - Asthenia [Recovering/Resolving]
  - Mood swings [Recovering/Resolving]

NARRATIVE: CASE EVENT DATE: 20200601
